FAERS Safety Report 5977784-4 (Version None)
Quarter: 2008Q4

REPORT INFORMATION
  Report Type: 
  Country: None (occurrence: None)
  Receive Date: 20081203
  Receipt Date: 20081124
  Transmission Date: 20090506
  Serious: Yes (Other)
  Sender: FDA-Public Use
  Company Number: US-BAXTER-2008BH013000

PATIENT
  Age: 48 Year
  Sex: Female
  Weight: 88 kg

DRUGS (11)
  1. POLYGAM S/D [Suspect]
     Indication: IMMUNODEFICIENCY COMMON VARIABLE
     Route: 042
     Dates: start: 20050501, end: 20071001
  2. POLYGAM S/D [Suspect]
     Indication: OFF LABEL USE
     Route: 042
     Dates: start: 20050501, end: 20071001
  3. SKELAXIN [Concomitant]
     Indication: BACK PAIN
     Route: 048
  4. VICODIN [Concomitant]
     Indication: BACK PAIN
     Route: 048
  5. LEVOTHYROXINE SODIUM [Concomitant]
     Indication: HYPOTHYROIDISM
     Route: 048
  6. LIPITOR [Concomitant]
     Indication: BLOOD CHOLESTEROL INCREASED
     Route: 048
  7. NEVRONTIN [Concomitant]
     Indication: PAIN IN EXTREMITY
     Route: 048
  8. POTASSIUM CHLORIDE [Concomitant]
     Indication: SUPPLEMENTATION THERAPY
     Route: 048
  9. HYZAAR [Concomitant]
     Indication: HYPERTENSION
     Route: 048
  10. FIORICET [Concomitant]
     Indication: PREMEDICATION
     Route: 048
  11. PHENERGAN HCL [Concomitant]
     Indication: PREMEDICATION
     Route: 048

REACTIONS (2)
  - KIDNEY INFECTION [None]
  - RENAL FAILURE ACUTE [None]
